FAERS Safety Report 12616598 (Version 1)
Quarter: 2016Q3

REPORT INFORMATION
  Report Type: Report from Study
  Country: FR (occurrence: FR)
  Receive Date: 20160802
  Receipt Date: 20160802
  Transmission Date: 20161109
  Serious: Yes (Hospitalization)
  Sender: FDA-Public Use
  Company Number: FR-TEVA-680918ACC

PATIENT
  Age: 52 Year
  Sex: Male
  Weight: 127 kg

DRUGS (1)
  1. WARFARIN [Suspect]
     Active Substance: WARFARIN
     Indication: ATRIAL FIBRILLATION
     Dosage: TEMPORARILY STOPPED FROM 05-JUL-2016 TO 08-JUL-2016
     Route: 048
     Dates: start: 20160518

REACTIONS (2)
  - Groin abscess [Not Recovered/Not Resolved]
  - Haematoma [Unknown]

NARRATIVE: CASE EVENT DATE: 20160623
